FAERS Safety Report 8746544 (Version 10)
Quarter: 2014Q3

REPORT INFORMATION
  Report Type: Spontaneous
  Country: US (occurrence: US)
  Receive Date: 20120827
  Receipt Date: 20140805
  Transmission Date: 20150326
  Serious: Yes (Hospitalization, Disabling, Other)
  Sender: FDA-Public Use
  Company Number: US-009507513-1208USA009466

PATIENT
  Sex: Female
  Weight: 87.44 kg

DRUGS (4)
  1. ALENDRONATE SODIUM. [Suspect]
     Active Substance: ALENDRONATE SODIUM
     Indication: OSTEOPOROSIS
  2. FOSAMAX [Suspect]
     Active Substance: ALENDRONATE SODIUM
     Indication: OSTEOPENIA
     Dosage: UNK
     Route: 048
     Dates: start: 1996
  3. FOSAMAX [Suspect]
     Active Substance: ALENDRONATE SODIUM
     Indication: OSTEOPOROSIS
     Dosage: 70 MG, QW
     Route: 048
     Dates: end: 201205
  4. ALENDRONATE SODIUM. [Suspect]
     Active Substance: ALENDRONATE SODIUM
     Indication: OSTEOPOROSIS PROPHYLAXIS
     Route: 048

REACTIONS (35)
  - Open reduction of fracture [Unknown]
  - Femur fracture [Recovered/Resolved]
  - Stress fracture [Not Recovered/Not Resolved]
  - Hypokalaemia [Unknown]
  - Fatigue [Unknown]
  - Bursitis [Unknown]
  - Femur fracture [Recovered/Resolved]
  - Hyperlipidaemia [Unknown]
  - Oedema [Unknown]
  - Malaise [Unknown]
  - Renal failure acute [Recovered/Resolved]
  - Low turnover osteopathy [Not Recovered/Not Resolved]
  - Anaemia postoperative [Recovered/Resolved]
  - Fall [Unknown]
  - Phlebolith [Unknown]
  - Pain in extremity [Unknown]
  - Fracture nonunion [Recovered/Resolved]
  - Intramedullary rod insertion [Recovered/Resolved]
  - Lymphadenopathy [Unknown]
  - Muscle twitching [Unknown]
  - Dizziness [Unknown]
  - Osteoporosis [Not Recovered/Not Resolved]
  - Viral pharyngitis [Unknown]
  - Fibromyalgia [Unknown]
  - Aortic valve disease [Unknown]
  - Bone graft [Recovered/Resolved]
  - Essential hypertension [Unknown]
  - Tendonitis [Unknown]
  - Inflammation [Unknown]
  - Tendonitis [Unknown]
  - Medical device pain [Unknown]
  - Gangrene [Unknown]
  - Femur fracture [Not Recovered/Not Resolved]
  - Acute coronary syndrome [Recovering/Resolving]
  - Pain [Unknown]

NARRATIVE: CASE EVENT DATE: 2000
